FAERS Safety Report 24547190 (Version 1)
Quarter: 2024Q4

REPORT INFORMATION
  Report Type: Report from Study
  Country: DE (occurrence: DE)
  Receive Date: 20241025
  Receipt Date: 20241025
  Transmission Date: 20250114
  Serious: No
  Sender: ROCHE
  Company Number: DE-ML39632-2339064-0

PATIENT
  Age: 41 Year
  Sex: Female
  Weight: 63 kg

DRUGS (5)
  1. OCREVUS [Suspect]
     Active Substance: OCRELIZUMAB
     Indication: Relapsing multiple sclerosis
     Route: 042
     Dates: start: 20200203, end: 20200217
  2. OCREVUS [Suspect]
     Active Substance: OCRELIZUMAB
     Route: 042
     Dates: start: 20200817
  3. Comirnaty (BioNTec) [Concomitant]
     Route: 030
     Dates: start: 20210713, end: 20210713
  4. Comirnaty (BioNTec) [Concomitant]
     Route: 030
     Dates: start: 202202, end: 202202
  5. Comirnaty (BioNTec) [Concomitant]
     Route: 030
     Dates: start: 2021, end: 2021

REACTIONS (1)
  - COVID-19 [Recovered/Resolved]

NARRATIVE: CASE EVENT DATE: 20241001
